FAERS Safety Report 4558071-8 (Version None)
Quarter: 2005Q1

REPORT INFORMATION
  Report Type: 
  Country: None (occurrence: None)
  Receive Date: 20050121
  Receipt Date: 20040831
  Transmission Date: 20050727
  Serious: No
  Sender: FDA-Public Use
  Company Number: US-BRISTOL-MYERS SQUIBB COMPANY-12689022

PATIENT
  Age: 63 Year
  Sex: Male
  Weight: 108 kg

DRUGS (8)
  1. SERZONE [Suspect]
     Indication: INSOMNIA
     Route: 048
     Dates: end: 20040826
  2. SERZONE [Suspect]
     Indication: DEPRESSION
     Route: 048
     Dates: end: 20040826
  3. VITAMIN E [Concomitant]
  4. CALCIUM MAGNESIUM CARBONATE [Concomitant]
  5. ACIPHEX [Concomitant]
  6. TOFRANIL [Concomitant]
  7. GLUCOSAMINE+CHONDROITIN+MSM [Concomitant]
  8. ZINC [Concomitant]

REACTIONS (4)
  - GASTROINTESTINAL DISORDER [None]
  - HEADACHE [None]
  - LETHARGY [None]
  - MALAISE [None]
